FAERS Safety Report 8911022 (Version 1)
Quarter: 2012Q4

REPORT INFORMATION
  Report Type: 
  Country: US (occurrence: US)
  Receive Date: 20121116
  Receipt Date: 20121116
  Transmission Date: 20130627
  Serious: Yes (Other)
  Sender: FDA-Public Use
  Company Number: US-BAYER-2012-117931

PATIENT
  Age: 22 Year
  Sex: Female

DRUGS (4)
  1. YASMIN [Suspect]
  2. MEPERIDINE [Concomitant]
     Dosage: UNK
     Route: 048
     Dates: start: 20040507
  3. MOTRIN [Concomitant]
     Dosage: 800
     Route: 048
  4. PERCOCET [Concomitant]

REACTIONS (2)
  - Deep vein thrombosis [None]
  - Pulmonary embolism [None]
